FAERS Safety Report 8965408 (Version 1)
Quarter: 2012Q4

REPORT INFORMATION
  Report Type: 
  Country: UA (occurrence: UA)
  Receive Date: 20121214
  Receipt Date: 20121214
  Transmission Date: 20130627
  Serious: Yes (Life-Threatening)
  Sender: FDA-Public Use
  Company Number: PHHY2012UA115206

PATIENT
  Age: 38 Year
  Sex: Male

DRUGS (1)
  1. RETARPEN [Suspect]
     Indication: ANTIBIOTIC PROPHYLAXIS
     Dosage: 2400000 IU, ONCE/SINGLE
     Route: 030
     Dates: start: 20070815, end: 20110115

REACTIONS (2)
  - Renal failure acute [Recovered/Resolved]
  - Urticaria [Recovered/Resolved]
